FAERS Safety Report 12848794 (Version 1)
Quarter: 2016Q4

REPORT INFORMATION
  Report Type: Spontaneous
  Country: US (occurrence: US)
  Receive Date: 20161014
  Receipt Date: 20161014
  Transmission Date: 20170207
  Serious: No
  Sender: FDA-Public Use
  Company Number: US-JNJFOC-20160804935

PATIENT
  Age: 84 Year
  Sex: Male
  Weight: 77.57 kg

DRUGS (1)
  1. TYLENOL EXTRA STRENGTH [Suspect]
     Active Substance: ACETAMINOPHEN
     Indication: HEADACHE
     Route: 048
     Dates: start: 20160801

REACTIONS (3)
  - Overdose [Unknown]
  - Product label issue [Unknown]
  - Inappropriate schedule of drug administration [Unknown]
